FAERS Safety Report 5512975-8 (Version None)
Quarter: 2007Q4

REPORT INFORMATION
  Report Type: 
  Country: None (occurrence: None)
  Receive Date: 20071108
  Receipt Date: 20071108
  Transmission Date: 20080405
  Serious: Yes (Hospitalization, Other)
  Sender: FDA-Public Use
  Company Number: None

PATIENT
  Sex: Female

DRUGS (9)
  1. REVLIMID [Suspect]
     Indication: MULTIPLE MYELOMA
     Dosage: 10MG  DAILY  PO;  10MG  EVERY 3 DAYS  PO
     Route: 048
     Dates: start: 20070824, end: 20070905
  2. REVLIMID [Suspect]
     Indication: MULTIPLE MYELOMA
     Dosage: 10MG  DAILY  PO;  10MG  EVERY 3 DAYS  PO
     Route: 048
     Dates: start: 20070905, end: 20070917
  3. VICODIN [Concomitant]
  4. BISACODYL [Concomitant]
  5. FLUTICASONE NASAL SPRAY [Concomitant]
  6. FAMOTADINE [Concomitant]
  7. OMEPRAZOLE [Concomitant]
  8. DEXAMETHASONE [Concomitant]
  9. PROCRIT [Concomitant]

REACTIONS (3)
  - BLOOD CREATININE INCREASED [None]
  - NAUSEA [None]
  - RENAL FAILURE ACUTE [None]
